FAERS Safety Report 10579879 (Version 1)
Quarter: 2014Q4

REPORT INFORMATION
  Report Type: Spontaneous
  Country: US (occurrence: US)
  Receive Date: 20141112
  Receipt Date: 20141112
  Transmission Date: 20150529
  Serious: Yes (Other)
  Sender: FDA-Public Use
  Company Number: US-GLAXOSMITHKLINE-US2014GSK020092

PATIENT
  Sex: Female

DRUGS (1)
  1. AVANDIA [Suspect]
     Active Substance: ROSIGLITAZONE MALEATE
     Indication: DIABETES MELLITUS
     Dosage: 8 MG, QD
     Dates: start: 200702, end: 200705

REACTIONS (4)
  - Bundle branch block right [Unknown]
  - Atrial fibrillation [Unknown]
  - Right ventricular hypertrophy [Unknown]
  - Myocardial ischaemia [Unknown]
